FAERS Safety Report 20363289 (Version 1)
Quarter: 2022Q1

REPORT INFORMATION
  Report Type: Spontaneous
  Country: US (occurrence: None)
  Receive Date: 20220121
  Receipt Date: 20220121
  Transmission Date: 20220423
  Serious: Yes (Disabling, Other)
  Sender: FDA-Public Use
  Company Number: None

PATIENT
  Age: 53 Year
  Sex: Male
  Weight: 81 kg

DRUGS (1)
  1. PROPECIA [Suspect]
     Active Substance: FINASTERIDE
     Indication: Alopecia
     Dosage: OTHER QUANTITY : .25 TABLET(S);?
     Route: 048
     Dates: end: 20211107

REACTIONS (11)
  - Androgens abnormal [None]
  - Collagen disorder [None]
  - Connective tissue disorder [None]
  - Dry skin [None]
  - Sleep disorder [None]
  - Heart rate abnormal [None]
  - Body temperature abnormal [None]
  - Fatigue [None]
  - Gastrointestinal disorder [None]
  - Visual impairment [None]
  - Nervous system disorder [None]

NARRATIVE: CASE EVENT DATE: 20211117
